FAERS Safety Report 5623901-5 (Version None)
Quarter: 2008Q1

REPORT INFORMATION
  Report Type: 
  Country: None (occurrence: None)
  Receive Date: 20080207
  Receipt Date: 20080124
  Transmission Date: 20080703
  Serious: Yes (Hospitalization)
  Sender: FDA-Public Use
  Company Number: 6040492

PATIENT
  Age: 70 Year
  Sex: Male

DRUGS (3)
  1. CARDIOCOR (TABLET) (BISOPROLOL) [Suspect]
     Indication: ARRHYTHMIA
     Dosage: 10 MG (10 MG, 1 IN 1 D), ORAL
     Route: 048
     Dates: start: 20070711, end: 20071015
  2. CORDARONE [Suspect]
     Indication: ATRIAL FIBRILLATION
     Dosage: 200 MG (200 MG, 1 IN 1 D) ORAL
     Route: 048
     Dates: start: 20070501, end: 20070601
  3. SECTRAL [Suspect]
     Indication: ARRHYTHMIA
     Dosage: 200 MG (200 MG, 1 IN 1 D) ORAL
     Route: 048
     Dates: start: 20060101, end: 20070710

REACTIONS (2)
  - OEDEMA PERIPHERAL [None]
  - PULMONARY FIBROSIS [None]
